FAERS Safety Report 5056434-8 (Version None)
Quarter: 2006Q3

REPORT INFORMATION
  Report Type: 
  Country: None (occurrence: None)
  Receive Date: 20060717
  Receipt Date: 20060705
  Transmission Date: 20061208
  Serious: Yes (Other)
  Sender: FDA-Public Use
  Company Number: MX-2006-017824

PATIENT
  Sex: Female

DRUGS (1)
  1. ANGELIQ [Suspect]
     Indication: HORMONE REPLACEMENT THERAPY
     Dosage: 1 TAB(S, ORAL
     Route: 048
     Dates: start: 20060101, end: 20060301

REACTIONS (2)
  - BREAST CANCER FEMALE [None]
  - BREAST CYST [None]
